FAERS Safety Report 7889230 (Version 2)
Quarter: 2013Q4

REPORT INFORMATION
  Report Type: Spontaneous
  Country: US (occurrence: US)
  Receive Date: 20110407
  Receipt Date: 20131114
  Transmission Date: 20140711
  Serious: Yes (Other)
  Sender: FDA-Public Use
  Company Number: US-ROCHE-769344

PATIENT
  Age: 33 Year
  Sex: Male

DRUGS (3)
  1. ACCUTANE [Suspect]
     Indication: ACNE
     Route: 048
     Dates: start: 198608, end: 198610
  2. ACCUTANE [Suspect]
     Indication: RASH
     Route: 048
     Dates: start: 198806, end: 198811
  3. ACCUTANE [Suspect]
     Route: 048

REACTIONS (4)
  - Colitis ulcerative [Unknown]
  - Colon cancer [Unknown]
  - Injury [Unknown]
  - Large intestine polyp [Unknown]
